FAERS Safety Report 5142570-4 (Version None)
Quarter: 2006Q4

REPORT INFORMATION
  Report Type: 
  Country: None (occurrence: None)
  Receive Date: 20061031
  Receipt Date: 20061031
  Transmission Date: 20070319
  Serious: Yes (Life-Threatening, Other)
  Sender: FDA-Public Use
  Company Number: None

PATIENT
  Age: 54 Year
  Sex: Female
  Weight: 72.5755 kg

DRUGS (8)
  1. PAXIL [Suspect]
     Indication: SOCIAL PHOBIA
     Dosage: 10MG DAILY PO
     Route: 048
     Dates: start: 20010201, end: 20041015
  2. VIVELLE-DOT PATCH [Concomitant]
  3. CLARINEX [Concomitant]
  4. FLONASE [Concomitant]
  5. PROMETRIUM [Concomitant]
  6. RANITIDINE [Concomitant]
  7. ALLERGY SHOTS [Concomitant]
  8. WELLBUTRIN [Concomitant]

REACTIONS (25)
  - ANXIETY [None]
  - ARTHRALGIA [None]
  - AUTONOMIC NERVOUS SYSTEM IMBALANCE [None]
  - BLUNTED AFFECT [None]
  - CONFUSIONAL STATE [None]
  - CRYING [None]
  - DEPRESSION [None]
  - DISINHIBITION [None]
  - DISTURBANCE IN ATTENTION [None]
  - DRUG WITHDRAWAL SYNDROME [None]
  - DYSPEPSIA [None]
  - FATIGUE [None]
  - HEART RATE INCREASED [None]
  - HYPERHIDROSIS [None]
  - HYPOMANIA [None]
  - HYPOTHYROIDISM [None]
  - ILL-DEFINED DISORDER [None]
  - IMPAIRED WORK ABILITY [None]
  - INSOMNIA [None]
  - MAJOR DEPRESSION [None]
  - MEMORY IMPAIRMENT [None]
  - OPHTHALMOPLEGIA [None]
  - PARAESTHESIA [None]
  - PSYCHIATRIC SYMPTOM [None]
  - TACHYCARDIA [None]
